FAERS Safety Report 10817346 (Version 1)
Quarter: 2015Q1

REPORT INFORMATION
  Report Type: Spontaneous
  Country: US (occurrence: US)
  Receive Date: 20150218
  Receipt Date: 20150218
  Transmission Date: 20150721
  Serious: Yes (Other)
  Sender: FDA-Public Use
  Company Number: US-ABBVIE-14K-163-1287490-00

PATIENT
  Age: 36 Year
  Sex: Female
  Weight: 61.29 kg

DRUGS (5)
  1. TYLENOL [Concomitant]
     Active Substance: ACETAMINOPHEN
     Indication: PRODUCT USED FOR UNKNOWN INDICATION
  2. ADVIL [Concomitant]
     Active Substance: IBUPROFEN
     Indication: PRODUCT USED FOR UNKNOWN INDICATION
  3. HUMIRA [Suspect]
     Active Substance: ADALIMUMAB
     Indication: RHEUMATOID ARTHRITIS
     Dates: start: 201407
  4. METHOTREXATE [Concomitant]
     Active Substance: METHOTREXATE
     Indication: PRODUCT USED FOR UNKNOWN INDICATION
  5. MUSCLE RELAXANTS [Concomitant]
     Active Substance: UNSPECIFIED INGREDIENT
     Indication: PRODUCT USED FOR UNKNOWN INDICATION

REACTIONS (14)
  - Cystitis [Recovered/Resolved]
  - Pain [Recovering/Resolving]
  - Pharyngeal oedema [Unknown]
  - Dental caries [Unknown]
  - Dyspnoea [Unknown]
  - Urinary tract infection [Unknown]
  - Dysphagia [Unknown]
  - Pharyngeal oedema [Recovered/Resolved]
  - Thyroid cyst [Unknown]
  - Tooth infection [Unknown]
  - Viral infection [Unknown]
  - Candida infection [Recovering/Resolving]
  - Vulvovaginal mycotic infection [Recovering/Resolving]
  - Goitre [Recovered/Resolved]

NARRATIVE: CASE EVENT DATE: 2014
